FAERS Safety Report 4872008-3 (Version None)
Quarter: 2005Q4

REPORT INFORMATION
  Report Type: 
  Country: None (occurrence: None)
  Receive Date: 20051230
  Receipt Date: 20051220
  Transmission Date: 20060501
  Serious: No
  Sender: FDA-Public Use
  Company Number: RS005545-F

PATIENT
  Age: 72 Year
  Sex: Female
  Weight: 57 kg

DRUGS (2)
  1. RABEPRAZOLE SODIUM [Suspect]
     Indication: GASTROOESOPHAGEAL REFLUX DISEASE
     Dosage: 10 MG, 1 IN 1 D, ORAL
     Route: 048
     Dates: start: 20031001, end: 20051001
  2. SOTALOL HCL [Concomitant]

REACTIONS (13)
  - ABDOMINAL PAIN [None]
  - ANOREXIA [None]
  - COUGH [None]
  - FLATULENCE [None]
  - GASTROINTESTINAL CANDIDIASIS [None]
  - GENERAL PHYSICAL HEALTH DETERIORATION [None]
  - NASOPHARYNGITIS [None]
  - NAUSEA [None]
  - OESOPHAGEAL CANDIDIASIS [None]
  - ORAL FUNGAL INFECTION [None]
  - PHARYNGEAL CANDIDIASIS [None]
  - TONGUE COATED [None]
  - WEIGHT DECREASED [None]
